FAERS Safety Report 13575525 (Version 1)
Quarter: 2017Q2

REPORT INFORMATION
  Report Type: Report from Study
  Country: AR (occurrence: AR)
  Receive Date: 20170524
  Receipt Date: 20170524
  Transmission Date: 20170830
  Serious: Yes (Life-Threatening, Hospitalization, Other)
  Sender: FDA-Public Use
  Company Number: AR-BRISTOL-MYERS SQUIBB COMPANY-BMS-2017-024385

PATIENT
  Age: 74 Year
  Sex: Male

DRUGS (1)
  1. NIVOLUMAB [Suspect]
     Active Substance: NIVOLUMAB
     Indication: RENAL CANCER
     Dosage: 100 MG, EVERY 15 DAYS
     Route: 065
     Dates: start: 20170317, end: 20170512

REACTIONS (5)
  - Nodule [Unknown]
  - Malignant neoplasm progression [Unknown]
  - Infection [Not Recovered/Not Resolved]
  - Pharyngitis [Recovering/Resolving]
  - Oral mucosal blistering [Unknown]

NARRATIVE: CASE EVENT DATE: 20170320
